FAERS Safety Report 9600185 (Version 1)
Quarter: 2013Q4

REPORT INFORMATION
  Report Type: Spontaneous
  Country: US (occurrence: US)
  Receive Date: 20131004
  Receipt Date: 20131004
  Transmission Date: 20140711
  Serious: No
  Sender: FDA-Public Use
  Company Number: US-AMGEN-USASP2013032726

PATIENT
  Age: 48 Year
  Sex: Female

DRUGS (9)
  1. ENBREL [Suspect]
     Indication: PRODUCT USED FOR UNKNOWN INDICATION
     Dosage: 50 MG, QWK
     Route: 058
  2. DOXYCYCLINE [Concomitant]
     Dosage: 150 MG, UNK
  3. ANTIHISTAMINES [Concomitant]
     Dosage: 25 MG, UNK
  4. METHOTREXATE [Concomitant]
     Dosage: 2.5 MG, UNK
  5. PEPCID                             /00706001/ [Concomitant]
     Dosage: 20 MG, UNK
  6. WARFARIN [Concomitant]
     Dosage: 5 MG, UNK
  7. CITALOPRAM [Concomitant]
     Dosage: 20 MG, UNK
  8. ZOFRAN                             /00955301/ [Concomitant]
     Dosage: 8 MG, UNK
  9. PREDNISONE [Concomitant]
     Dosage: 5 MG, UNK

REACTIONS (1)
  - Bacterial infection [Unknown]
